FAERS Safety Report 13511312 (Version 1)
Quarter: 2017Q2

REPORT INFORMATION
  Report Type: Spontaneous
  Country: AR (occurrence: AR)
  Receive Date: 20170503
  Receipt Date: 20170503
  Transmission Date: 20170830
  Serious: Yes (Other)
  Sender: FDA-Public Use
  Company Number: AR-AMGEN-ARGSP2017067298

PATIENT
  Age: 63 Year
  Sex: Female

DRUGS (1)
  1. ENBREL [Suspect]
     Active Substance: ETANERCEPT
     Indication: RHEUMATOID ARTHRITIS
     Dosage: 25 MG, WEEKLY
     Route: 065
     Dates: start: 20041101

REACTIONS (5)
  - Pneumonia [Unknown]
  - Agitation [Unknown]
  - Bronchial disorder [Unknown]
  - Decreased immune responsiveness [Unknown]
  - Asthma [Unknown]

NARRATIVE: CASE EVENT DATE: 2014
